FAERS Safety Report 7248211-4 (Version None)
Quarter: 2011Q1

REPORT INFORMATION
  Report Type: 
  Country: None (occurrence: None)
  Receive Date: 20110127
  Receipt Date: 20110124
  Transmission Date: 20110831
  Serious: Yes (Hospitalization)
  Sender: FDA-Public Use
  Company Number: US-BAYER-201041930NA

PATIENT
  Sex: Female

DRUGS (4)
  1. FISH OIL [Concomitant]
  2. CENTRUM SILVER [Concomitant]
  3. BETASERON [Suspect]
     Indication: MULTIPLE SCLEROSIS
     Dosage: 8 MIU, QOD
     Route: 058
     Dates: start: 20100506, end: 20101119
  4. BETASERON [Suspect]
     Dosage: 8 MIU, QOD
     Route: 058
     Dates: start: 20101206

REACTIONS (2)
  - SYNCOPE [None]
  - FALL [None]
